FAERS Safety Report 9400319 (Version 1)
Quarter: 2013Q3

REPORT INFORMATION
  Report Type: Spontaneous
  Country: US (occurrence: None)
  Receive Date: 20130712
  Receipt Date: 20130712
  Transmission Date: 20140515
  Serious: No
  Sender: FDA-Public Use
  Company Number: None

PATIENT
  Age: 91 Year
  Sex: Female

DRUGS (1)
  1. PROLIA [Suspect]
     Dosage: 60 MG/ML Q 6 MOS SC
     Route: 058
     Dates: start: 20130617

REACTIONS (5)
  - Bone pain [None]
  - Myalgia [None]
  - Muscle spasms [None]
  - Paraesthesia [None]
  - Fibromyalgia [None]
